FAERS Safety Report 13637592 (Version 2)
Quarter: 2017Q2

REPORT INFORMATION
  Report Type: Spontaneous
  Country: US (occurrence: US)
  Receive Date: 20170609
  Receipt Date: 20170615
  Transmission Date: 20170830
  Serious: Yes (Death, Other)
  Sender: FDA-Public Use
  Company Number: US-PFIZER INC-2017246376

PATIENT

DRUGS (5)
  1. BACTERIOSTATIC SODIUM CHLORIDE [Suspect]
     Active Substance: SODIUM CHLORIDE
     Indication: CATHETER MANAGEMENT
     Dosage: UNK
     Route: 042
  2. BENZYL ALCOHOL [Suspect]
     Active Substance: BENZYL ALCOHOL
     Indication: MEDICATION DILUTION
  3. WATER BACTERIOSTATIC [Suspect]
     Active Substance: WATER
     Indication: MEDICATION DILUTION
     Dosage: UNK
  4. BENZYL ALCOHOL [Suspect]
     Active Substance: BENZYL ALCOHOL
     Indication: CATHETER MANAGEMENT
     Dosage: UNK
     Route: 042
  5. HEPARIN [Concomitant]
     Active Substance: HEPARIN SODIUM

REACTIONS (2)
  - Toxicity to various agents [Fatal]
  - Gasping syndrome [Fatal]
